FAERS Safety Report 7132987-0 (Version None)
Quarter: 2010Q4

REPORT INFORMATION
  Report Type: 
  Country: None (occurrence: None)
  Receive Date: 20101202
  Receipt Date: 20101130
  Transmission Date: 20110411
  Serious: Yes (Hospitalization, Other)
  Sender: FDA-Public Use
  Company Number: US-MERCK-0903USA04196

PATIENT
  Age: 81 Year
  Sex: Female

DRUGS (10)
  1. FOSAMAX [Suspect]
     Indication: OSTEOPOROSIS
     Route: 048
     Dates: start: 19990101, end: 20060801
  2. FOSAMAX [Suspect]
     Route: 048
     Dates: start: 20030529, end: 20080101
  3. FOSAMAX [Suspect]
     Indication: OSTEOPENIA
     Route: 048
     Dates: start: 19990101, end: 20060801
  4. FOSAMAX [Suspect]
     Route: 048
     Dates: start: 20030529, end: 20080101
  5. ACTONEL [Suspect]
     Indication: OSTEOPOROSIS
     Route: 048
     Dates: start: 20040101, end: 20060101
  6. ACTONEL [Suspect]
     Route: 048
     Dates: start: 20060101, end: 20070401
  7. ACTONEL [Suspect]
     Indication: OSTEOPENIA
     Route: 048
     Dates: start: 20040101, end: 20060101
  8. ACTONEL [Suspect]
     Route: 048
     Dates: start: 20060101, end: 20070401
  9. BONIVA [Suspect]
     Route: 065
     Dates: start: 20070401
  10. OGEN [Concomitant]
     Indication: HORMONE REPLACEMENT THERAPY
     Route: 065

REACTIONS (52)
  - ABSCESS JAW [None]
  - ADVERSE DRUG REACTION [None]
  - ANAEMIA [None]
  - APICAL GRANULOMA [None]
  - APPENDIX DISORDER [None]
  - ATROPHIC VULVOVAGINITIS [None]
  - BLADDER DISORDER [None]
  - BLOOD PRESSURE INCREASED [None]
  - BONE DENSITY INCREASED [None]
  - CELLULITIS [None]
  - DENTAL CARIES [None]
  - DENTAL PLAQUE [None]
  - DEVICE FAILURE [None]
  - DRUG INEFFECTIVE [None]
  - DYSPHAGIA [None]
  - FISTULA [None]
  - FLUID RETENTION [None]
  - GALLBLADDER DISORDER [None]
  - GASTRIC DISORDER [None]
  - GASTROOESOPHAGEAL REFLUX DISEASE [None]
  - GINGIVAL ABSCESS [None]
  - GINGIVAL BLEEDING [None]
  - GINGIVAL PAIN [None]
  - GINGIVAL SWELLING [None]
  - JAW DISORDER [None]
  - LOBAR PNEUMONIA [None]
  - MUSCLE SPASMS [None]
  - NAIL DISORDER [None]
  - NORMOCHROMIC NORMOCYTIC ANAEMIA [None]
  - ORAL TORUS [None]
  - OSTEOARTHRITIS [None]
  - OSTEOMYELITIS [None]
  - OSTEONECROSIS OF JAW [None]
  - OSTEORADIONECROSIS [None]
  - PLEURITIC PAIN [None]
  - POSTOPERATIVE WOUND INFECTION [None]
  - RASH [None]
  - RECTOCELE [None]
  - SINUS CONGESTION [None]
  - SKELETAL INJURY [None]
  - SPLENIC GRANULOMA [None]
  - SUBDURAL HAEMATOMA [None]
  - SUTURE RELATED COMPLICATION [None]
  - TEMPOROMANDIBULAR JOINT SYNDROME [None]
  - THYROID NEOPLASM [None]
  - TONGUE DISCOLOURATION [None]
  - TOOTH ABSCESS [None]
  - TOOTH DEPOSIT [None]
  - TOOTH DISORDER [None]
  - TOOTH LOSS [None]
  - URINARY TRACT INFECTION BACTERIAL [None]
  - VERTIGO [None]
